FAERS Safety Report 16827715 (Version 1)
Quarter: 2019Q3

REPORT INFORMATION
  Report Type: Report from Study
  Country: AU (occurrence: AU)
  Receive Date: 20190919
  Receipt Date: 20190919
  Transmission Date: 20191005
  Serious: Yes (Hospitalization)
  Sender: FDA-Public Use
  Company Number: AU-VERTEX PHARMACEUTICALS-2019-008445

PATIENT
  Sex: Female

DRUGS (1)
  1. ORKAMBI [Suspect]
     Active Substance: IVACAFTOR\LUMACAFTOR
     Indication: CYSTIC FIBROSIS
     Dosage: 200MG LUMACAFTOR/125MG IVACAFTOR
     Route: 048

REACTIONS (1)
  - Cystic fibrosis respiratory infection suppression [Unknown]

NARRATIVE: CASE EVENT DATE: 2019
